FAERS Safety Report 23862865 (Version 5)
Quarter: 2024Q3

REPORT INFORMATION
  Report Type: Spontaneous
  Country: BR (occurrence: BR)
  Receive Date: 20240516
  Receipt Date: 20240729
  Transmission Date: 20241016
  Serious: Yes (Other)
  Sender: PFIZER
  Company Number: BR-TAKEDA-2024TUS046581

PATIENT
  Age: 44 Year
  Sex: Male
  Weight: 63 kg

DRUGS (6)
  1. PANTOPRAZOLE [Suspect]
     Active Substance: PANTOPRAZOLE
     Indication: Gastrooesophageal reflux disease
     Dosage: 40 MG, 1X/DAY
     Dates: start: 202404
  2. PANTOPRAZOLE [Suspect]
     Active Substance: PANTOPRAZOLE
     Indication: Gastritis
  3. MESALAMINE [Suspect]
     Active Substance: MESALAMINE
     Dosage: 1 DOSAGE FORM, QD
     Route: 065
     Dates: start: 20230401
  4. MESALAMINE [Suspect]
     Active Substance: MESALAMINE
     Dosage: 1 DOSAGE FORM, QD
     Route: 065
  5. MESALAMINE [Suspect]
     Active Substance: MESALAMINE
     Indication: Colitis
     Dosage: 2 DOSAGE FORM, BID (ENTERIC COATED TABLET)
     Dates: start: 202404
  6. MESALAMINE [Suspect]
     Active Substance: MESALAMINE
     Dosage: 3 DOSAGE FORM (ENTERIC COATED TABLET)
     Route: 065

REACTIONS (11)
  - Colitis [Unknown]
  - Haematochezia [Recovered/Resolved]
  - Disease recurrence [Unknown]
  - Colitis ulcerative [Unknown]
  - Gastritis [Unknown]
  - Poor quality product administered [Unknown]
  - Product physical issue [Unknown]
  - Product coating issue [Unknown]
  - Product quality issue [Unknown]
  - Abnormal faeces [Recovered/Resolved]
  - Mucous stools [Recovered/Resolved]

NARRATIVE: CASE EVENT DATE: 20240505
